FAERS Safety Report 8153507-8 (Version None)
Quarter: 2012Q1

REPORT INFORMATION
  Report Type: 
  Country: None (occurrence: None)
  Receive Date: 20120221
  Receipt Date: 20120216
  Transmission Date: 20120608
  Serious: Yes (Hospitalization)
  Sender: FDA-Public Use
  Company Number: US-GILEAD-2012-0050486

PATIENT
  Sex: Male

DRUGS (3)
  1. LETAIRIS [Suspect]
     Indication: PULMONARY HYPERTENSION
     Dosage: 10 MG, UNK
     Route: 048
     Dates: start: 20090303
  2. LETAIRIS [Suspect]
     Indication: RENAL FAILURE CHRONIC
  3. LETAIRIS [Suspect]
     Indication: SARCOIDOSIS

REACTIONS (2)
  - URINARY TRACT INFECTION [None]
  - DYSPNOEA [None]
